FAERS Safety Report 15857150 (Version 2)
Quarter: 2019Q1

REPORT INFORMATION
  Report Type: Report from Study
  Country: PA (occurrence: PA)
  Receive Date: 20190123
  Receipt Date: 20190212
  Transmission Date: 20190417
  Serious: Yes (Hospitalization)
  Sender: FDA-Public Use
  Company Number: PA-TAIHO ONCOLOGY  INC-IM-2019-00030

PATIENT
  Age: 45 Year
  Sex: Female
  Weight: 39.5 kg

DRUGS (1)
  1. LONSURF [Suspect]
     Active Substance: TIPIRACIL HYDROCHLORIDE\TRIFLURIDINE
     Indication: COLORECTAL CANCER METASTATIC
     Dosage: 50 MG (35 MG/M2) BID, ON DAYS 1-5 AND 8-12 OF EACH 28-DAY CYCLE
     Route: 048
     Dates: start: 20181019, end: 20181215

REACTIONS (2)
  - Intestinal obstruction [Recovered/Resolved]
  - Disease progression [None]

NARRATIVE: CASE EVENT DATE: 20181228
